FAERS Safety Report 4555418-3 (Version None)
Quarter: 2005Q1

REPORT INFORMATION
  Report Type: 
  Country: None (occurrence: None)
  Receive Date: 20041228
  Receipt Date: 20041028
  Transmission Date: 20050727
  Serious: Yes (Disabling)
  Sender: FDA-Public Use
  Company Number: PHEH2004US11693

PATIENT
  Age: 83 Year
  Sex: Male

DRUGS (7)
  1. AREDIA [Suspect]
  2. THALIDOMIDE (THALIDOMIDE) [Suspect]
     Indication: MULTIPLE MYELOMA
     Dosage: 50 MG, QHS
     Dates: start: 20040512, end: 20040521
  3. DECADRON [Concomitant]
  4. AXID [Concomitant]
  5. VITAMIN C [Concomitant]
  6. IRON [Concomitant]
  7. LORTAB [Concomitant]

REACTIONS (3)
  - ASTHENIA [None]
  - HEADACHE [None]
  - INFUSION SITE BURNING [None]
